FAERS Safety Report 4499095-9 (Version None)
Quarter: 2004Q4

REPORT INFORMATION
  Report Type: 
  Country: None (occurrence: None)
  Receive Date: 20041108
  Receipt Date: 20040826
  Transmission Date: 20050328
  Serious: Yes (Hospitalization)
  Sender: FDA-Public Use
  Company Number: F01200403310

PATIENT
  Age: 66 Year
  Sex: Male

DRUGS (2)
  1. (OXALIPLATIN) - SOLUTION - 210 MG [Suspect]
     Indication: COLON CANCER
     Dosage: 210 MG, Q3W, INTRAVENOUS NOS
     Route: 042
     Dates: start: 20040824, end: 20040824
  2. CAPECITABINE - TABLET- 1950 MG [Suspect]
     Dosage: 650 MG AM AND 2X650 MG PM PER ORAL  2 WEEKS, Q3W; ORAL
     Route: 048

REACTIONS (1)
  - LARYNGOSPASM [None]
